FAERS Safety Report 9001816 (Version 1)
Quarter: 2013Q1

REPORT INFORMATION
  Report Type: Spontaneous
  Country: FR (occurrence: FR)
  Receive Date: 20130107
  Receipt Date: 20130107
  Transmission Date: 20140127
  Serious: Yes (Hospitalization)
  Sender: FDA-Public Use
  Company Number: FR-ROCHE-1177233

PATIENT
  Age: 33 Year
  Sex: Female

DRUGS (2)
  1. ROCEPHINE [Suspect]
     Indication: URINARY TRACT INFECTION
     Route: 041
     Dates: start: 20121030, end: 20121101
  2. TIENAM [Concomitant]

REACTIONS (1)
  - Toxic skin eruption [Recovered/Resolved]
